FAERS Safety Report 7718232-3 (Version None)
Quarter: 2011Q3

REPORT INFORMATION
  Report Type: 
  Country: None (occurrence: None)
  Receive Date: 20110830
  Receipt Date: 20110822
  Transmission Date: 20111222
  Serious: Yes (Other)
  Sender: FDA-Public Use
  Company Number: PHEH2011US02126

PATIENT
  Age: 80 Year
  Sex: Female

DRUGS (1)
  1. CALCITONIN SALMON [Suspect]
     Dosage: 200 IU, QD
     Route: 045

REACTIONS (2)
  - NEOPLASM MALIGNANT [None]
  - DEVICE MALFUNCTION [None]
